FAERS Safety Report 8624822-6 (Version None)
Quarter: 2012Q3

REPORT INFORMATION
  Report Type: 
  Country: None (occurrence: None)
  Receive Date: 20120827
  Receipt Date: 20120820
  Transmission Date: 20120928
  Serious: Yes (Life-Threatening, Hospitalization)
  Sender: FDA-Public Use
  Company Number: US-JNJFOC-20120603631

PATIENT
  Sex: Female
  Weight: 94.8 kg

DRUGS (2)
  1. REMICADE [Suspect]
     Route: 042
     Dates: start: 20101014
  2. REMICADE [Suspect]
     Indication: PSORIASIS
     Route: 042
     Dates: start: 20080401

REACTIONS (1)
  - BREAST CANCER [None]
